FAERS Safety Report 7308941-2 (Version None)
Quarter: 2011Q1

REPORT INFORMATION
  Report Type: 
  Country: None (occurrence: None)
  Receive Date: 20110210
  Receipt Date: 20110120
  Transmission Date: 20110831
  Serious: Yes (Death)
  Sender: FDA-Public Use
  Company Number: AE11-007-12

PATIENT
  Age: 63 Year
  Sex: Female

DRUGS (2)
  1. TEMAZEPAM [Suspect]
  2. LORCET (ACTAMINOPHEN/HYDROCODONE) [Suspect]

REACTIONS (3)
  - RESPIRATORY ARREST [None]
  - DRUG ABUSE [None]
  - CARDIAC ARREST [None]
